FAERS Safety Report 11237752 (Version 1)
Quarter: 2015Q3

REPORT INFORMATION
  Report Type: Spontaneous
  Country: TN (occurrence: TN)
  Receive Date: 20150703
  Receipt Date: 20150703
  Transmission Date: 20151125
  Serious: Yes (Death, Other)
  Sender: FDA-Public Use
  Company Number: PHHY2015TN079157

PATIENT
  Sex: Male

DRUGS (6)
  1. CILASTATIN SODIUM, IMIPENEM (TIENAM) [Suspect]
     Active Substance: CILASTATIN SODIUM\IMIPENEM
     Indication: PRODUCT USED FOR UNKNOWN INDICATION
     Route: 065
  2. VANCOMYCIN [Suspect]
     Active Substance: VANCOMYCIN
     Indication: EPIDERMOLYSIS BULLOSA
     Route: 065
  3. FLUCONAZOLE. [Suspect]
     Active Substance: FLUCONAZOLE
     Indication: PRODUCT USED FOR UNKNOWN INDICATION
     Dosage: 6 MG/KG, PER DAY SLOW INFUSION
     Route: 065
  4. CEFOTAXIME [Suspect]
     Active Substance: CEFOTAXIME SODIUM
     Indication: EPIDERMOLYSIS BULLOSA
     Route: 065
  5. COTRIMOXAZOLE [Suspect]
     Active Substance: SULFAMETHOXAZOLE\TRIMETHOPRIM
     Indication: EPIDERMOLYSIS BULLOSA
     Route: 065
  6. GENTAMICIN. [Suspect]
     Active Substance: GENTAMICIN
     Indication: EPIDERMOLYSIS BULLOSA
     Route: 065

REACTIONS (10)
  - Sepsis [Unknown]
  - Tachypnoea [Unknown]
  - Pseudomonas test positive [None]
  - Hepatomegaly [Unknown]
  - Condition aggravated [Fatal]
  - Pyrexia [Unknown]
  - Fungaemia [Unknown]
  - Epidermolysis bullosa [None]
  - Anaemia [Unknown]
  - Thrombocytopenia [Unknown]
